FAERS Safety Report 20940224 (Version 1)
Quarter: 2022Q2

REPORT INFORMATION
  Report Type: Spontaneous
  Country: US (occurrence: US)
  Receive Date: 20220609
  Receipt Date: 20220609
  Transmission Date: 20220720
  Serious: Yes (Death, Other)
  Sender: FDA-Public Use
  Company Number: US-INCYTE CORPORATION-2022IN005698

PATIENT

DRUGS (3)
  1. JAKAFI [Suspect]
     Active Substance: RUXOLITINIB
     Indication: Prostate cancer
     Dosage: 15 MILLIGRAM, TWICE A DAY
     Route: 048
     Dates: start: 202203
  2. JAKAFI [Suspect]
     Active Substance: RUXOLITINIB
     Indication: Essential thrombocythaemia
  3. JAKAFI [Suspect]
     Active Substance: RUXOLITINIB
     Indication: Pulmonary arterial hypertension

REACTIONS (4)
  - Myelofibrosis [Fatal]
  - Pulmonary hypertension [Fatal]
  - Cardiac failure [Fatal]
  - Off label use [Unknown]

NARRATIVE: CASE EVENT DATE: 20220301
